FAERS Safety Report 9699352 (Version 3)
Quarter: 2013Q4

REPORT INFORMATION
  Report Type: Spontaneous
  Country: US (occurrence: US)
  Receive Date: 20131120
  Receipt Date: 20131127
  Transmission Date: 20140711
  Serious: Yes (Other)
  Sender: FDA-Public Use
  Company Number: ALCN2013US005638

PATIENT
  Age: 68 Year
  Sex: 0
  Weight: 74.83 kg

DRUGS (4)
  1. TEARS NATURALE FORTE [Suspect]
     Dosage: UNK
     Dates: start: 20130912
  2. CRESTOR [Concomitant]
     Indication: BLOOD CHOLESTEROL INCREASED
     Dosage: UNK
  3. WARFARIN [Concomitant]
     Indication: ATRIAL FIBRILLATION
  4. FLECAINIDE [Concomitant]
     Indication: ATRIAL FIBRILLATION

REACTIONS (14)
  - IVth nerve paralysis [Not Recovered/Not Resolved]
  - Diplopia [Not Recovered/Not Resolved]
  - Blepharitis [Recovering/Resolving]
  - Expired drug administered [Unknown]
  - Eyelid oedema [Recovering/Resolving]
  - Ocular hyperaemia [Recovering/Resolving]
  - Lacrimation increased [Recovering/Resolving]
  - Erythema of eyelid [Recovering/Resolving]
  - Chalazion [Recovering/Resolving]
  - Eyelid margin crusting [Recovering/Resolving]
  - Glare [Not Recovered/Not Resolved]
  - Visual impairment [Not Recovered/Not Resolved]
  - Vision blurred [Not Recovered/Not Resolved]
  - Amnesia [Unknown]
